FAERS Safety Report 24047657 (Version 4)
Quarter: 2024Q3

REPORT INFORMATION
  Report Type: Spontaneous
  Country: AR (occurrence: AR)
  Receive Date: 20240703
  Receipt Date: 20240902
  Transmission Date: 20241017
  Serious: Yes (Other)
  Sender: SANDOZ
  Company Number: AR-002147023-NVSC2024AR047863

PATIENT
  Age: 60 Year
  Sex: Female

DRUGS (8)
  1. FULVESTRANT [Suspect]
     Active Substance: FULVESTRANT
     Dosage: UNK, QMO (AMPOULE)
     Route: 040
     Dates: start: 20240122
  2. FULVESTRANT [Suspect]
     Active Substance: FULVESTRANT
     Indication: Breast cancer metastatic
     Dosage: UNK, QMO (AMPOULE)
     Route: 042
     Dates: start: 20240122
  3. KISQALI [Suspect]
     Active Substance: RIBOCICLIB
     Dosage: 200 MG, BID
     Route: 048
     Dates: start: 2024
  4. KISQALI [Suspect]
     Active Substance: RIBOCICLIB
     Dosage: 400 MG, QD
     Route: 048
     Dates: start: 20240122
  5. KISQALI [Suspect]
     Active Substance: RIBOCICLIB
     Dosage: 200 MG, BID
     Route: 048
  6. KISQALI [Suspect]
     Active Substance: RIBOCICLIB
     Dosage: 400 MG, QD
     Route: 048
     Dates: start: 202407
  7. KISQALI [Suspect]
     Active Substance: RIBOCICLIB
     Dosage: 400 MG, QD (2 TABLETS OF 200 MG)
     Route: 048
  8. KISQALI [Suspect]
     Active Substance: RIBOCICLIB
     Indication: Breast cancer metastatic
     Dosage: 600 MG, QD (3 OF 200MG)
     Route: 048
     Dates: start: 20240122

REACTIONS (19)
  - Blindness [Unknown]
  - Decreased immune responsiveness [Unknown]
  - Mobility decreased [Unknown]
  - Epigastric discomfort [Unknown]
  - Dry throat [Recovered/Resolved]
  - Musculoskeletal stiffness [Unknown]
  - Oropharyngeal plaque [Not Recovered/Not Resolved]
  - Throat irritation [Recovered/Resolved]
  - Movement disorder [Recovered/Resolved]
  - White blood cell count decreased [Recovered/Resolved]
  - White blood cell count decreased [Recovered/Resolved]
  - Oropharyngeal pain [Unknown]
  - Abdominal pain upper [Not Recovered/Not Resolved]
  - Cough [Recovered/Resolved]
  - Dizziness [Recovered/Resolved]
  - Nausea [Unknown]
  - Pharyngitis bacterial [Unknown]
  - Pyrexia [Recovered/Resolved]
  - Inappropriate schedule of product administration [Unknown]

NARRATIVE: CASE EVENT DATE: 20240201
